FAERS Safety Report 24222529 (Version 1)
Quarter: 2024Q3

REPORT INFORMATION
  Report Type: Spontaneous
  Country: RO (occurrence: RO)
  Receive Date: 20240819
  Receipt Date: 20240819
  Transmission Date: 20241017
  Serious: Yes (Hospitalization, Other)
  Sender: CHEPLAPHARM
  Company Number: None

PATIENT
  Age: 65 Year
  Sex: Female

DRUGS (6)
  1. CAPECITABINE [Suspect]
     Active Substance: CAPECITABINE
     Indication: Rectal adenocarcinoma
     Dosage: ADJUVANT CHEMOTHERAPY (CAPE OX)
     Dates: start: 2016
  2. CAPECITABINE [Suspect]
     Active Substance: CAPECITABINE
     Indication: Metastases to liver
     Dosage: ADJUVANT CHEMOTHERAPY (CAPE OX)
     Dates: start: 2016
  3. LEUCOVORIN [Suspect]
     Active Substance: LEUCOVORIN\LEUCOVORIN CALCIUM
     Indication: Colorectal cancer metastatic
     Dosage: 4? FUFOL
     Dates: start: 2014
  4. OXALIPLATIN [Suspect]
     Active Substance: OXALIPLATIN
     Indication: Metastases to liver
     Dosage: ADJUVANT CHEMOTHERAPY (CAPE OX)
     Dates: start: 2016
  5. OXALIPLATIN [Suspect]
     Active Substance: OXALIPLATIN
     Indication: Rectal adenocarcinoma
     Dosage: ADJUVANT CHEMOTHERAPY (CAPE OX)
     Dates: start: 2016
  6. FLUOROURACIL [Suspect]
     Active Substance: FLUOROURACIL
     Indication: Rectal adenocarcinoma
     Dosage: 4? FUFOL
     Dates: start: 2014

REACTIONS (3)
  - Venoocclusive liver disease [Recovering/Resolving]
  - Varices oesophageal [Recovering/Resolving]
  - Portal hypertensive gastropathy [Recovering/Resolving]

NARRATIVE: CASE EVENT DATE: 20200101
